FAERS Safety Report 17367120 (Version 1)
Quarter: 2020Q1

REPORT INFORMATION
  Report Type: Report from Study
  Country: US (occurrence: US)
  Receive Date: 20200204
  Receipt Date: 20200204
  Transmission Date: 20200409
  Serious: Yes (Other)
  Sender: FDA-Public Use
  Company Number: US-ROCHE-2540451

PATIENT
  Sex: Female

DRUGS (2)
  1. OCREVUS [Suspect]
     Active Substance: OCRELIZUMAB
     Indication: PRIMARY PROGRESSIVE MULTIPLE SCLEROSIS
     Dosage: ONGOING: YES?DATE OF TREATMENT = 02/JUL/2018, 07/JAN/2019, 08/JUL/2019,
     Route: 065
     Dates: start: 20180618
  2. OCREVUS [Suspect]
     Active Substance: OCRELIZUMAB
     Dosage: (DISPENSE IN THE FORM OF 2 300 MG VIALS REFILL: 1)
     Route: 042

REACTIONS (1)
  - Pneumonia [Recovered/Resolved]
